FAERS Safety Report 5781682-9 (Version None)
Quarter: 2008Q2

REPORT INFORMATION
  Report Type: 
  Country: None (occurrence: None)
  Receive Date: 20080619
  Receipt Date: 20080606
  Transmission Date: 20081010
  Serious: No
  Sender: FDA-Public Use
  Company Number: TPA2008A00861

PATIENT
  Age: 67 Year
  Sex: Female
  Weight: 72.5755 kg

DRUGS (19)
  1. ACTOS [Suspect]
     Indication: TYPE 2 DIABETES MELLITUS
     Dosage: 15 MG, 1 IN 1 D, PER ORAL, 7.5 MG, 1 IN 1 D, PER ORAL, 15 MG, 1 IN 1 D, ORAL
     Route: 048
     Dates: end: 20070101
  2. ACTOS [Suspect]
     Indication: TYPE 2 DIABETES MELLITUS
     Dosage: 15 MG, 1 IN 1 D, PER ORAL, 7.5 MG, 1 IN 1 D, PER ORAL, 15 MG, 1 IN 1 D, ORAL
     Route: 048
     Dates: start: 20070101, end: 20080501
  3. ACTOS [Suspect]
     Indication: TYPE 2 DIABETES MELLITUS
     Dosage: 15 MG, 1 IN 1 D, PER ORAL, 7.5 MG, 1 IN 1 D, PER ORAL, 15 MG, 1 IN 1 D, ORAL
     Route: 048
     Dates: start: 20080501
  4. ZOCOR [Suspect]
     Indication: BLOOD CHOLESTEROL INCREASED
     Dosage: 1 IN 1 D, PER ORAL
     Route: 048
     Dates: start: 20080501
  5. ESTRACE [Concomitant]
  6. ACTONEL [Concomitant]
  7. AMITRIPTLINE HCL [Concomitant]
  8. DICLOFENAC SODIUM [Concomitant]
  9. HYDROCHLOROTHIAZIDE [Concomitant]
  10. POTASSIUM CHLORIDE [Concomitant]
  11. ATENOLOL [Concomitant]
  12. COZAAR [Concomitant]
  13. NEXIUM [Concomitant]
  14. MIDRIN (PARACETAMOL, DICHLORALPHENAZONE, ISOMETHEPTENE) [Concomitant]
  15. MULTIVITAMIN [Concomitant]
  16. GLUCOSAMINE/CHONDROITIN (GLUCOSAMINE, CHONDROITIN SULFATE) [Concomitant]
  17. ACIDOPHILUS (LACTOBACILLUS ACIDOPHILUS) [Concomitant]
  18. ALBUTEROL [Concomitant]
  19. CALCIUM (CALCIUM) [Concomitant]

REACTIONS (7)
  - BLOOD CHOLESTEROL INCREASED [None]
  - DYSPNOEA [None]
  - GAIT DISTURBANCE [None]
  - HEART RATE IRREGULAR [None]
  - MYOCARDIAL INFARCTION [None]
  - PALPITATIONS [None]
  - RASH [None]
